FAERS Safety Report 6477479-7 (Version None)
Quarter: 2009Q4

REPORT INFORMATION
  Report Type: 
  Country: None (occurrence: None)
  Receive Date: 20091207
  Receipt Date: 20091123
  Transmission Date: 20100525
  Serious: Yes (Hospitalization)
  Sender: FDA-Public Use
  Company Number: IT-SANOFI-AVENTIS-2009SA004084

PATIENT
  Age: 64 Year
  Sex: Male

DRUGS (2)
  1. CHLOROQUINE (SALT NOT SPECIFIED) [Suspect]
     Indication: MALARIA
     Route: 065
     Dates: start: 20061201
  2. CHLOROQUINE (SALT NOT SPECIFIED) [Suspect]
     Route: 065
     Dates: start: 19970101

REACTIONS (7)
  - BRAIN NATRIURETIC PEPTIDE INCREASED [None]
  - BUNDLE BRANCH BLOCK RIGHT [None]
  - CARDIAC FAILURE CONGESTIVE [None]
  - CARDIOMYOPATHY [None]
  - EJECTION FRACTION DECREASED [None]
  - OEDEMA PERIPHERAL [None]
  - PULMONARY ARTERIAL PRESSURE INCREASED [None]
